FAERS Safety Report 4301528-5 (Version None)
Quarter: 2004Q1

REPORT INFORMATION
  Report Type: 
  Country: None (occurrence: None)
  Receive Date: 20040219
  Receipt Date: 20040204
  Transmission Date: 20041129
  Serious: Yes (Hospitalization)
  Sender: FDA-Public Use
  Company Number: S04-USA-00097-01

PATIENT
  Age: 92 Year
  Sex: Female
  Weight: 57.1532 kg

DRUGS (10)
  1. NAMENDA [Suspect]
     Indication: DEMENTIA ALZHEIMER'S TYPE
     Dosage: 10 MG QD PO
     Route: 048
     Dates: start: 20031231, end: 20040101
  2. AXURA (MEMANTINE) [Suspect]
     Indication: DEMENTIA ALZHEIMER'S TYPE
     Dosage: 10 MG QD PO
     Route: 048
     Dates: start: 20031001, end: 20031230
  3. EXELON [Concomitant]
  4. GLYBURIDE [Concomitant]
  5. FUROSEMIDE [Concomitant]
  6. LIPITOR [Concomitant]
  7. POTASSIUM [Concomitant]
  8. METOPROLOL [Concomitant]
  9. LEXAPRO [Concomitant]
  10. ZOLOFT [Concomitant]

REACTIONS (5)
  - BALANCE DISORDER [None]
  - BLOOD GLUCOSE INCREASED [None]
  - DYSARTHRIA [None]
  - HYPOTENSION [None]
  - PLEUROTHOTONUS [None]
